FAERS Safety Report 5203804-0 (Version None)
Quarter: 2007Q1

REPORT INFORMATION
  Report Type: 
  Country: None (occurrence: None)
  Receive Date: 20070109
  Receipt Date: 20070109
  Transmission Date: 20070707
  Serious: No
  Sender: FDA-Public Use
  Company Number: None

PATIENT
  Age: 48 Year
  Sex: Female

DRUGS (2)
  1. LEVAQUIN [Suspect]
     Indication: PROPHYLAXIS
     Dosage: 500 MG ONCE IV DRIP LEES THAN 10 MINUTES
     Route: 041
     Dates: start: 20061117, end: 20061117
  2. LEVAQUIN [Suspect]
     Indication: SURGERY
     Dosage: 500 MG ONCE IV DRIP LEES THAN 10 MINUTES
     Route: 041
     Dates: start: 20061117, end: 20061117

REACTIONS (2)
  - INFUSION RELATED REACTION [None]
  - RASH ERYTHEMATOUS [None]
